FAERS Safety Report 18021092 (Version 2)
Quarter: 2020Q3

REPORT INFORMATION
  Report Type: Not Available
  Country: US (occurrence: US)
  Receive Date: 20200714
  Receipt Date: 20200806
  Transmission Date: 20201103
  Serious: No
  Sender: FDA-Public Use
  Company Number: US-NEUROCRINE BIOSCIENCES INC.-2020NBI02280

PATIENT
  Age: 56 Year
  Sex: Female

DRUGS (17)
  1. PRAMIPEXOLE. [Concomitant]
     Active Substance: PRAMIPEXOLE
  2. ROSUVASTATIN. [Concomitant]
     Active Substance: ROSUVASTATIN
  3. INGREZZA [Suspect]
     Active Substance: VALBENAZINE
     Indication: TARDIVE DYSKINESIA
     Route: 048
     Dates: start: 20200505, end: 2020
  4. OMEPRAZOLE. [Concomitant]
     Active Substance: OMEPRAZOLE
  5. OXYBUTYNIN. [Concomitant]
     Active Substance: OXYBUTYNIN CHLORIDE
  6. HUMULIN R AND N [Concomitant]
  7. TRAZODONE [Concomitant]
     Active Substance: TRAZODONE HYDROCHLORIDE
     Indication: INSOMNIA
     Dosage: AT BEDTIME
     Route: 048
     Dates: start: 20160804
  8. BREO ELLIPTA [Concomitant]
     Active Substance: FLUTICASONE FUROATE\VILANTEROL TRIFENATATE
  9. GABAPENTIN. [Concomitant]
     Active Substance: GABAPENTIN
  10. ESTRADIOL. [Concomitant]
     Active Substance: ESTRADIOL
  11. DULOXETINE. [Concomitant]
     Active Substance: DULOXETINE
     Indication: DEPRESSION
     Route: 048
     Dates: start: 20190821
  12. LEVOTHYROXINE. [Concomitant]
     Active Substance: LEVOTHYROXINE
  13. INGREZZA [Suspect]
     Active Substance: VALBENAZINE
     Route: 048
     Dates: start: 20200708
  14. ALBUTEROL. [Concomitant]
     Active Substance: ALBUTEROL
  15. CLONAZEPAM. [Concomitant]
     Active Substance: CLONAZEPAM
     Indication: ANXIETY
     Route: 048
     Dates: start: 20130320
  16. ROPINIROLE. [Concomitant]
     Active Substance: ROPINIROLE
  17. VITAMIN D3 [Concomitant]
     Active Substance: CHOLECALCIFEROL

REACTIONS (6)
  - Tremor [Recovering/Resolving]
  - Feeling abnormal [Recovering/Resolving]
  - Insomnia [Not Recovered/Not Resolved]
  - Dyskinesia [Recovering/Resolving]
  - Restlessness [Recovering/Resolving]
  - Therapeutic product effect incomplete [Unknown]

NARRATIVE: CASE EVENT DATE: 2020
